FAERS Safety Report 6691619-6 (Version None)
Quarter: 2010Q2

REPORT INFORMATION
  Report Type: 
  Country: None (occurrence: None)
  Receive Date: 20100422
  Receipt Date: 20090804
  Transmission Date: 20101027
  Serious: No
  Sender: FDA-Public Use
  Company Number: US-ASTRAZENECA-2009SE06923

PATIENT
  Sex: Female
  Weight: 81.6 kg

DRUGS (2)
  1. TOPROL-XL [Suspect]
     Route: 048
  2. CRESTOR [Concomitant]

REACTIONS (2)
  - DRY EYE [None]
  - MACULAR DEGENERATION [None]
